FAERS Safety Report 19156698 (Version 2)
Quarter: 2021Q2

REPORT INFORMATION
  Report Type: Report from Study
  Country: None (occurrence: NL)
  Receive Date: 20210420
  Receipt Date: 20210512
  Transmission Date: 20210717
  Serious: Yes (Hospitalization)
  Sender: FDA-Public Use
  Company Number: NL-ABBVIE-21K-114-3760193-00

PATIENT
  Age: 56 Year
  Sex: Male

DRUGS (15)
  1. DUODOPA [Suspect]
     Active Substance: CARBIDOPA\LEVODOPA
     Dosage: MD: 9.0 ML, CD: 2.2 ML/H, ED: 4.0 ML
     Route: 050
  2. OMEPRAZOLE. [Concomitant]
     Active Substance: OMEPRAZOLE
     Indication: HYPERCHLORHYDRIA
     Route: 048
     Dates: start: 20170101
  3. DUODOPA [Suspect]
     Active Substance: CARBIDOPA\LEVODOPA
     Dosage: MD: 11.0 ML, CD: 2.6 ML/H, ED: 4.0 ML?DOSAGE DECREASED
     Route: 050
     Dates: start: 2021, end: 2021
  4. DUODOPA [Suspect]
     Active Substance: CARBIDOPA\LEVODOPA
     Dosage: MD: 8.0 CD: 3.1 ML/H ED: 4.0 ML
     Route: 050
     Dates: start: 2021, end: 2021
  5. MADOPAR [Concomitant]
     Active Substance: BENSERAZIDE HYDROCHLORIDE\LEVODOPA
     Indication: PARKINSON^S DISEASE
     Dosage: 4?5 TIMES PER DAY
     Route: 048
     Dates: start: 20130101, end: 20210125
  6. MADOPAR HBS [Concomitant]
     Active Substance: BENSERAZIDE HYDROCHLORIDE\LEVODOPA
     Indication: PARKINSON^S DISEASE
     Route: 048
     Dates: start: 20170101
  7. TEMAZEPAM. [Concomitant]
     Active Substance: TEMAZEPAM
     Indication: SLEEP DISORDER
     Route: 048
     Dates: start: 20180101
  8. DUODOPA [Suspect]
     Active Substance: CARBIDOPA\LEVODOPA
     Dosage: MD: 12.0 CD: 3.4 ML/H ED: 4.0 ML
     Route: 050
     Dates: start: 2021, end: 2021
  9. DUODOPA [Suspect]
     Active Substance: CARBIDOPA\LEVODOPA
     Dosage: MD: 12.0 CD: 3.2 ML/H ED: 4.0 ML
     Route: 050
     Dates: start: 2021, end: 2021
  10. DUODOPA [Suspect]
     Active Substance: CARBIDOPA\LEVODOPA
     Dosage: CD: 1.9ML/H
     Route: 050
  11. DUODOPA [Suspect]
     Active Substance: CARBIDOPA\LEVODOPA
     Dosage: MD: 9.0 CD: 3.4 ML/H ED: 4.0 ML
     Route: 050
     Dates: start: 2021, end: 2021
  12. DUODOPA [Suspect]
     Active Substance: CARBIDOPA\LEVODOPA
     Dosage: MD: 11.0 ML, CD: 2.8 ML/H, ED: 4.0 ML
     Route: 050
     Dates: start: 2021, end: 2021
  13. DUODOPA [Suspect]
     Active Substance: CARBIDOPA\LEVODOPA
     Dosage: MD: 11.0 ML, CD: 2.6 ML/H, ED: 4.0 ML
     Route: 050
     Dates: start: 2021, end: 2021
  14. DUODOPA [Suspect]
     Active Substance: CARBIDOPA\LEVODOPA
     Indication: PARKINSON^S DISEASE
     Dosage: MD: 8.0 CD: 2.5 ML/H ED: 4.0 ML
     Route: 050
     Dates: start: 20210125, end: 2021
  15. DUODOPA [Suspect]
     Active Substance: CARBIDOPA\LEVODOPA
     Dosage: MD: 11.0 ML, CD: 2.2 ML/H, ED: 4.0 ML
     Route: 050
     Dates: start: 2021

REACTIONS (31)
  - Loss of personal independence in daily activities [Not Recovered/Not Resolved]
  - Tremor [Not Recovered/Not Resolved]
  - Burning sensation [Recovered/Resolved]
  - Myalgia [Recovered/Resolved]
  - Poor quality sleep [Recovering/Resolving]
  - Dyschezia [Recovering/Resolving]
  - Memory impairment [Not Recovered/Not Resolved]
  - Anxiety [Not Recovered/Not Resolved]
  - Hallucination [Recovering/Resolving]
  - Limb discomfort [Unknown]
  - Bradykinesia [Not Recovered/Not Resolved]
  - Sleep disorder [Recovered/Resolved]
  - Hyperkinesia [Not Recovered/Not Resolved]
  - Unevaluable event [Not Recovered/Not Resolved]
  - Nocturia [Not Recovered/Not Resolved]
  - Tremor [Recovered/Resolved]
  - Muscle rigidity [Not Recovered/Not Resolved]
  - Device difficult to use [Unknown]
  - Dyskinesia [Not Recovered/Not Resolved]
  - Musculoskeletal disorder [Not Recovered/Not Resolved]
  - On and off phenomenon [Unknown]
  - Gastrointestinal infection [Not Recovered/Not Resolved]
  - Diarrhoea [Recovering/Resolving]
  - Hallucination, visual [Unknown]
  - Stoma site discharge [Recovered/Resolved]
  - Weight decreased [Not Recovered/Not Resolved]
  - Abnormal dreams [Not Recovered/Not Resolved]
  - Hallucination [Recovered/Resolved]
  - On and off phenomenon [Recovered/Resolved]
  - Dyskinesia [Recovering/Resolving]
  - Obsessive-compulsive disorder [Recovering/Resolving]

NARRATIVE: CASE EVENT DATE: 2021
